FAERS Safety Report 9162573 (Version 1)
Quarter: 2013Q1

REPORT INFORMATION
  Report Type: Spontaneous
  Country: CA (occurrence: CA)
  Receive Date: 20130314
  Receipt Date: 20130314
  Transmission Date: 20140127
  Serious: Yes (Other)
  Sender: FDA-Public Use
  Company Number: CA-AMGEN-CANSP2013005763

PATIENT
  Age: 71 Year
  Sex: Female
  Weight: 48.98 kg

DRUGS (3)
  1. PROLIA [Suspect]
     Indication: OSTEOPOROSIS
     Dosage: 60 MG, Q6MO
     Route: 058
     Dates: start: 20120911, end: 20120919
  2. CALCIUM CARBONATE [Concomitant]
     Indication: OSTEOPOROSIS
     Dosage: 500 MG, QD
     Route: 048
     Dates: start: 20110414
  3. D-TABS [Concomitant]
     Indication: OSTEOPOROSIS
     Dosage: 10000 IU, QWK
     Dates: start: 20110414

REACTIONS (4)
  - Laryngeal oedema [Recovered/Resolved]
  - Anaphylactic reaction [Recovered/Resolved]
  - Swollen tongue [Recovered/Resolved]
  - Rash pruritic [Recovered/Resolved]
